FAERS Safety Report 8301506-5 (Version None)
Quarter: 2012Q2

REPORT INFORMATION
  Report Type: 
  Country: None (occurrence: None)
  Receive Date: 20120420
  Receipt Date: 20120417
  Transmission Date: 20120825
  Serious: Yes (Other)
  Sender: FDA-Public Use
  Company Number: PHHY2012DE032846

PATIENT
  Sex: Male

DRUGS (3)
  1. TAXOTERE [Suspect]
     Indication: CHEMOTHERAPY
     Dosage: 75 MG/M2, MATERNAL DOSE
     Route: 064
  2. CARBOPLATIN [Suspect]
     Indication: CHEMOTHERAPY
     Route: 064
  3. HERCEPTIN [Suspect]
     Indication: CHEMOTHERAPY
     Dosage: 4 MG/KG, MATERNAL DOSE
     Route: 064

REACTIONS (5)
  - RENAL FAILURE [None]
  - FOETAL EXPOSURE DURING PREGNANCY [None]
  - PREMATURE BABY [None]
  - FOETAL GROWTH RESTRICTION [None]
  - LOW BIRTH WEIGHT BABY [None]
